FAERS Safety Report 5086264-2 (Version None)
Quarter: 2006Q3

REPORT INFORMATION
  Report Type: 
  Country: None (occurrence: None)
  Receive Date: 20060703
  Receipt Date: 20060222
  Transmission Date: 20061208
  Serious: No
  Sender: FDA-Public Use
  Company Number: 2006S1001587

PATIENT
  Age: 48 Year
  Sex: Female
  Weight: 92.0802 kg

DRUGS (6)
  1. CLOZAPINE [Suspect]
     Indication: PSYCHOTIC DISORDER
     Dosage: 100 MG;BID;PO
     Route: 048
     Dates: start: 20060207
  2. CLOZAPINE [Suspect]
     Indication: SCHIZOAFFECTIVE DISORDER
     Dosage: 100 MG;BID;PO
     Route: 048
     Dates: start: 20060207
  3. QUETIAPINE [Concomitant]
  4. VALPROIC ACID [Concomitant]
  5. LEVOTHYROXINE SODIUM [Concomitant]
  6. METFORMIN HCL [Concomitant]

REACTIONS (1)
  - GRANULOCYTOPENIA [None]
